FAERS Safety Report 7121199-2 (Version None)
Quarter: 2010Q4

REPORT INFORMATION
  Report Type: 
  Country: None (occurrence: None)
  Receive Date: 20101124
  Receipt Date: 20101118
  Transmission Date: 20110411
  Serious: Yes (Hospitalization)
  Sender: FDA-Public Use
  Company Number: US-SANOFI-AVENTIS-2010SA070419

PATIENT
  Age: 46 Year
  Sex: Female

DRUGS (5)
  1. ELOXATIN [Suspect]
     Indication: COLON CANCER
     Route: 051
     Dates: start: 20101117, end: 20101117
  2. LEUCOVORIN [Suspect]
     Indication: COLON CANCER
     Route: 051
     Dates: start: 20101117, end: 20101117
  3. FLUOROURACIL [Suspect]
     Indication: COLON CANCER
     Route: 051
     Dates: start: 20101117, end: 20101117
  4. ALOXI [Concomitant]
     Indication: PREMEDICATION
  5. DEXAMETHASONE [Concomitant]
     Indication: PREMEDICATION

REACTIONS (3)
  - DEVICE DEPLOYMENT ISSUE [None]
  - DYSPNOEA [None]
  - PLEURAL EFFUSION [None]
